FAERS Safety Report 12465784 (Version 6)
Quarter: 2016Q3

REPORT INFORMATION
  Report Type: Report from Study
  Country: IL (occurrence: IL)
  Receive Date: 20160614
  Receipt Date: 20160815
  Transmission Date: 20161109
  Serious: Yes (Hospitalization, Other)
  Sender: FDA-Public Use
  Company Number: IL-ABBVIE-16P-082-1650633-00

PATIENT
  Age: 62 Year
  Sex: Male

DRUGS (2)
  1. HUMALOG [Concomitant]
     Active Substance: INSULIN LISPRO
     Indication: DIABETES MELLITUS
     Route: 065
  2. DUODOPA [Suspect]
     Active Substance: CARBIDOPA\LEVODOPA
     Indication: PARKINSON^S DISEASE
     Route: 050
     Dates: start: 20160605

REACTIONS (14)
  - Hypoglycaemia [Unknown]
  - Stoma site erythema [Unknown]
  - Dyskinesia [Unknown]
  - Cellulitis [Recovered/Resolved]
  - Stoma site discharge [Recovered/Resolved]
  - Hyperglycaemia [Unknown]
  - Stoma site erythema [Recovered/Resolved]
  - Weight decreased [Unknown]
  - Stoma site reaction [Not Recovered/Not Resolved]
  - Pyrexia [Recovered/Resolved]
  - Pain [Unknown]
  - Blood glucose fluctuation [Unknown]
  - Parkinsonian rest tremor [Unknown]
  - Haemoglobin decreased [Unknown]

NARRATIVE: CASE EVENT DATE: 2016
